FAERS Safety Report 5303202-5 (Version None)
Quarter: 2007Q2

REPORT INFORMATION
  Report Type: 
  Country: None (occurrence: None)
  Receive Date: 20070420
  Receipt Date: 20070411
  Transmission Date: 20071010
  Serious: Yes (Hospitalization)
  Sender: FDA-Public Use
  Company Number: US-ROCHE-492594

PATIENT
  Age: 34 Year
  Sex: Female
  Weight: 55 kg

DRUGS (8)
  1. ROCALTROL [Suspect]
     Route: 065
     Dates: start: 20050721
  2. ROCALTROL [Suspect]
     Route: 065
  3. MYCOPHENOLATE MOFETIL [Suspect]
     Route: 048
     Dates: start: 20050719
  4. PREDNISONE TAB [Suspect]
     Route: 048
     Dates: start: 20050721
  5. TACROLIMUS [Suspect]
     Route: 048
     Dates: start: 20050720
  6. BACTRIM [Concomitant]
     Dates: start: 20050723
  7. ZANTAC [Concomitant]
     Dates: start: 20050719
  8. VALCYTE [Concomitant]
     Dates: start: 20050724

REACTIONS (1)
  - TACHYCARDIA [None]
